FAERS Safety Report 20102009 (Version 1)
Quarter: 2021Q4

REPORT INFORMATION
  Report Type: Spontaneous
  Country: US (occurrence: US)
  Receive Date: 20211123
  Receipt Date: 20211123
  Transmission Date: 20220303
  Serious: No
  Sender: FDA-Public Use
  Company Number: US-AMGEN-USASP2021179270

PATIENT
  Age: 76 Year
  Sex: Male

DRUGS (1)
  1. REPATHA [Suspect]
     Active Substance: EVOLOCUMAB
     Indication: Hypercholesterolaemia
     Dosage: 140 MILLIGRAM, Q2WK
     Route: 065
     Dates: start: 202104, end: 202111

REACTIONS (15)
  - Fungal infection [Unknown]
  - Pruritus [Unknown]
  - Sneezing [Unknown]
  - Micturition urgency [Unknown]
  - Neck pain [Unknown]
  - Insomnia [Unknown]
  - Blood pressure increased [Unknown]
  - Fatigue [Unknown]
  - Rhinorrhoea [Unknown]
  - Muscle spasms [Unknown]
  - Cough [Unknown]
  - Rash [Not Recovered/Not Resolved]
  - Myalgia [Unknown]
  - Back pain [Unknown]
  - Arthralgia [Unknown]

NARRATIVE: CASE EVENT DATE: 20210101
